FAERS Safety Report 6137018 (Version 3)
Quarter: 2012Q4

REPORT INFORMATION
  Report Type: 
  Country: US (occurrence: US)
  Receive Date: 20060927
  Receipt Date: 20121105
  Transmission Date: 20130627
  Serious: Yes (Hospitalization, Other)
  Sender: FDA-Public Use
  Company Number: US-BAYER-200612885BCC

PATIENT
  Age: 52 Year
  Sex: Male
  Weight: 97.51 kg

DRUGS (2)
  1. ALKA-SELTZER ORIGINAL [Suspect]
     Indication: INDIGESTION
     Route: 048
     Dates: start: 1986, end: 200606
  2. ALKA-SELTZER ORIGINAL [Suspect]
     Indication: INDIGESTION
     Dosage: UNK
     Route: 048
     Dates: end: 201204

REACTIONS (6)
  - Abdominal pain [Unknown]
  - Pain [Unknown]
  - Vomiting [Not Recovered/Not Resolved]
  - Nephrolithiasis [None]
  - Dependence [None]
  - Pain [Recovering/Resolving]
